FAERS Safety Report 20113002 (Version 1)
Quarter: 2021Q4

REPORT INFORMATION
  Report Type: Spontaneous
  Country: IT (occurrence: IT)
  Receive Date: 20211125
  Receipt Date: 20211125
  Transmission Date: 20220304
  Serious: Yes (Hospitalization, Other)
  Sender: FDA-Public Use
  Company Number: None

PATIENT
  Age: 73 Year
  Sex: Female

DRUGS (1)
  1. ZOLPIDEM TARTRATE [Suspect]
     Active Substance: ZOLPIDEM TARTRATE
     Indication: Anxiety disorder
     Dosage: 600 MG TOTAL
     Route: 048
     Dates: start: 20210912, end: 20210915

REACTIONS (3)
  - Malaise [Unknown]
  - Anxiety [Unknown]
  - Drug abuse [Unknown]

NARRATIVE: CASE EVENT DATE: 20210915
